FAERS Safety Report 5877747-3 (Version None)
Quarter: 2008Q3

REPORT INFORMATION
  Report Type: 
  Country: None (occurrence: None)
  Receive Date: 20080911
  Receipt Date: 20080903
  Transmission Date: 20090109
  Serious: Yes (Disabling, Other)
  Sender: FDA-Public Use
  Company Number: FR-AMGEN-US306686

PATIENT
  Sex: Female

DRUGS (3)
  1. ENBREL [Suspect]
     Indication: RHEUMATOID ARTHRITIS
     Route: 058
     Dates: start: 20030201, end: 20080222
  2. CARTREX [Concomitant]
     Dosage: UNKNOWN
     Route: 065
  3. IXPRIM [Concomitant]
     Dosage: UNKNOWN
     Route: 065

REACTIONS (5)
  - ANAL ABSCESS [None]
  - DRUG EFFECT DECREASED [None]
  - GROIN ABSCESS [None]
  - PUSTULAR PSORIASIS [None]
  - URTICARIA AQUAGENIC [None]
